FAERS Safety Report 6871945-8 (Version None)
Quarter: 2010Q3

REPORT INFORMATION
  Report Type: 
  Country: None (occurrence: None)
  Receive Date: 20100723
  Receipt Date: 20100721
  Transmission Date: 20110219
  Serious: Yes (Hospitalization)
  Sender: FDA-Public Use
  Company Number: A0871603A

PATIENT
  Age: 49 Year
  Sex: Female

DRUGS (2)
  1. ALLI [Suspect]
     Indication: WEIGHT LOSS DIET
     Route: 048
     Dates: end: 20100704
  2. ZOLOFT [Concomitant]
     Indication: DEPRESSION

REACTIONS (5)
  - BACK PAIN [None]
  - CARDIAC DISORDER [None]
  - CHEST PAIN [None]
  - CHOLECYSTECTOMY [None]
  - CHOLECYSTITIS INFECTIVE [None]
